FAERS Safety Report 10070891 (Version 2)
Quarter: 2014Q4

REPORT INFORMATION
  Report Type: Report from Study
  Country: BR (occurrence: BR)
  Receive Date: 20140410
  Receipt Date: 20141001
  Transmission Date: 20150528
  Serious: Yes (Death, Disabling)
  Sender: FDA-Public Use
  Company Number: BR-BAYER-2014-049512

PATIENT
  Age: 57 Year
  Sex: Male
  Weight: 56 kg

DRUGS (5)
  1. NEXAVAR [Suspect]
     Active Substance: SORAFENIB
     Indication: HEPATIC CANCER
     Dosage: 2 TABLETS IN THE MORNING AND 2 TABLETS AT NIGHT
     Route: 048
     Dates: start: 201402, end: 20140321
  2. BEPANTOL DERMA SOLUCAO [Suspect]
     Active Substance: DEXPANTHENOL
     Indication: TESTICULAR PAIN
     Dosage: UNK
     Route: 061
     Dates: start: 20140323
  3. CAPTOPRIL. [Concomitant]
     Active Substance: CAPTOPRIL
     Dosage: 1 DF, QD
  4. NEXAVAR [Suspect]
     Active Substance: SORAFENIB
     Indication: HEPATIC CANCER
     Dosage: 2 TABLETS IN THE MORNING AND 1 AT NIGHT
     Route: 048
     Dates: start: 201403
  5. BEPANTOL DERMA SOLUCAO [Suspect]
     Active Substance: DEXPANTHENOL
     Indication: ORCHITIS NONINFECTIVE
     Dosage: UNK
     Route: 061

REACTIONS (12)
  - Skin papilloma [Not Recovered/Not Resolved]
  - Eyelid skin dryness [Recovering/Resolving]
  - Oral candidiasis [Not Recovered/Not Resolved]
  - Haemorrhage [Fatal]
  - Orchitis noninfective [Recovered/Resolved]
  - Weight decreased [Not Recovered/Not Resolved]
  - Contusion [None]
  - Product use issue [None]
  - Testicular pain [Recovered/Resolved]
  - Multi-organ failure [Fatal]
  - Dry skin [Not Recovered/Not Resolved]
  - Skin wound [Recovering/Resolving]

NARRATIVE: CASE EVENT DATE: 2014
